FAERS Safety Report 6317793-9 (Version None)
Quarter: 2009Q3

REPORT INFORMATION
  Report Type: 
  Country: None (occurrence: None)
  Receive Date: 20090821
  Receipt Date: 20090601
  Transmission Date: 20100115
  Serious: No
  Sender: FDA-Public Use
  Company Number: US-BAYER-200922559NA

PATIENT
  Sex: Female

DRUGS (1)
  1. CLIMARA PRO [Suspect]
     Indication: MENOPAUSAL SYMPTOMS
     Dosage: 0.45/0.05MG/DAY CONTINUOUS DELIVERY FOR ONCE WEEKLY APPLICATION
     Route: 062

REACTIONS (5)
  - APPLICATION SITE ERYTHEMA [None]
  - APPLICATION SITE PERSPIRATION [None]
  - APPLICATION SITE PRURITUS [None]
  - APPLICATION SITE REACTION [None]
  - APPLICATION SITE URTICARIA [None]
